FAERS Safety Report 14568207 (Version 1)
Quarter: 2018Q1

REPORT INFORMATION
  Report Type: Spontaneous
  Country: US (occurrence: US)
  Receive Date: 20180223
  Receipt Date: 20180223
  Transmission Date: 20180509
  Serious: No
  Sender: FDA-Public Use
  Company Number: US-IMPAX LABORATORIES, INC-2017-IPXL-03216

PATIENT
  Age: 78 Year
  Sex: Female
  Weight: 61 kg

DRUGS (2)
  1. EMVERM [Suspect]
     Active Substance: MEBENDAZOLE
     Indication: INFECTION PARASITIC
     Dosage: 1 TABLET,  DF, 2 /DAY
     Route: 048
  2. EMVERM [Suspect]
     Active Substance: MEBENDAZOLE
     Indication: PRODUCT USE IN UNAPPROVED INDICATION

REACTIONS (1)
  - Drug ineffective for unapproved indication [Unknown]
